FAERS Safety Report 8978502 (Version 1)
Quarter: 2012Q4

REPORT INFORMATION
  Report Type: Spontaneous
  Country: US (occurrence: None)
  Receive Date: 20121218
  Receipt Date: 20121218
  Transmission Date: 20130627
  Serious: Yes (Other)
  Sender: FDA-Public Use
  Company Number: None

PATIENT
  Age: 81 Year
  Sex: Male
  Weight: 86.18 kg

DRUGS (1)
  1. VESICARE [Suspect]
     Indication: BLADDER INCONTINENCE
     Dosage: 5-MG once daily
     Dates: start: 20121008, end: 20121021

REACTIONS (3)
  - Oedema peripheral [None]
  - Vascular rupture [None]
  - Product quality issue [None]
